FAERS Safety Report 7433205-6 (Version None)
Quarter: 2011Q2

REPORT INFORMATION
  Report Type: 
  Country: None (occurrence: None)
  Receive Date: 20110422
  Receipt Date: 20110412
  Transmission Date: 20111010
  Serious: Yes (Other)
  Sender: FDA-Public Use
  Company Number: PHHY2011US11244

PATIENT
  Age: 66 Year
  Sex: Male

DRUGS (10)
  1. DIOVAN [Suspect]
     Dosage: 160 MG, UNK
  2. POTASSIUM CHLORIDE [Concomitant]
     Dosage: 10 MG, UNK
  3. MELOXICAM [Concomitant]
     Dosage: 15 MG, UNK
  4. MULTI-VIT [Concomitant]
  5. LIPITOR [Concomitant]
     Dosage: 20 MG, UNK
  6. HUMIRA [Concomitant]
  7. ACETAMINOPHEN AND HYDROCODONE BITARTRATE [Concomitant]
  8. RANITIDINE HCL [Concomitant]
     Dosage: 150 MG, UNK
  9. LEXAPRO [Concomitant]
     Dosage: 10 MG, UNK
  10. METFORMIN [Concomitant]
     Dosage: 500 MG, UNK

REACTIONS (1)
  - RHEUMATOID ARTHRITIS [None]
